FAERS Safety Report 9337732 (Version 1)
Quarter: 2013Q2

REPORT INFORMATION
  Report Type: Spontaneous
  Country: CH (occurrence: CH)
  Receive Date: 20130607
  Receipt Date: 20130607
  Transmission Date: 20140414
  Serious: Yes (Other)
  Sender: FDA-Public Use
  Company Number: CH-ASTRAZENECA-2013SE39860

PATIENT
  Age: 33 Year
  Sex: Female

DRUGS (4)
  1. NEXIUM [Suspect]
     Route: 048
  2. REMERON [Suspect]
     Indication: BIPOLAR DISORDER
     Route: 048
     Dates: start: 20100101, end: 20130419
  3. REMERON [Suspect]
     Indication: DEPRESSION
     Route: 048
     Dates: start: 20100101, end: 20130419
  4. MOTILIUM [Suspect]
     Route: 065

REACTIONS (8)
  - Exposure during pregnancy [Unknown]
  - Depression [Unknown]
  - Sleep disorder [Unknown]
  - Dyspepsia [Unknown]
  - Nausea [Unknown]
  - Vomiting [Unknown]
  - Decreased appetite [Unknown]
  - Intentional drug misuse [Unknown]
